FAERS Safety Report 20779204 (Version 1)
Quarter: 2022Q2

REPORT INFORMATION
  Report Type: Spontaneous
  Country: US (occurrence: None)
  Receive Date: 20220503
  Receipt Date: 20220503
  Transmission Date: 20220720
  Serious: Yes (Death)
  Sender: FDA-Public Use
  Company Number: None

PATIENT
  Age: 69 Year
  Sex: Female
  Weight: 128.0 kg

DRUGS (14)
  1. PIQRAY [Suspect]
     Active Substance: ALPELISIB
     Indication: Breast cancer female
     Dosage: FREQUENCY : DAILY;?
     Route: 048
     Dates: start: 202204
  2. BU[RP[OPM HCI ER [Concomitant]
  3. CYCLOBENZAPRINE HC [Concomitant]
  4. CYCLOSPORINE [Concomitant]
  5. LASIX [Concomitant]
  6. LEXAPRO [Concomitant]
     Active Substance: ESCITALOPRAM OXALATE
  7. MORPHINE SULFATE [Concomitant]
  8. OXYCODONE HCL [Concomitant]
  9. PHENEGRAN [Concomitant]
  10. POTASSIUM CHLORIDE [Concomitant]
  11. PROTONIX [Concomitant]
  12. SYSTANE HYDRATION [Concomitant]
  13. TAXOL ZOFRAN [Concomitant]
  14. ZOLPIDEM [Concomitant]
     Active Substance: ZOLPIDEM TARTRATE

REACTIONS (1)
  - Death [None]
